FAERS Safety Report 17610419 (Version 1)
Quarter: 2020Q1

REPORT INFORMATION
  Report Type: Spontaneous
  Country: US (occurrence: US)
  Receive Date: 20200330
  Receipt Date: 20200330
  Transmission Date: 20200409
  Serious: Yes (Other)
  Sender: FDA-Public Use
  Company Number: None

PATIENT
  Age: 30 Year
  Sex: Female

DRUGS (2)
  1. TOBRAMYCIN 40MG/ML [Suspect]
     Active Substance: TOBRAMYCIN
     Indication: CYSTIC FIBROSIS
     Dosage: ?          OTHER DOSE:2 ORANGE TAB AM;OTHER FREQUENCY:1BLUE TAB PM;?
     Route: 048
     Dates: start: 20190827
  2. TRIKAFTA [Suspect]
     Active Substance: ELEXACAFTOR\IVACAFTOR\TEZACAFTOR
     Indication: CYSTIC FIBROSIS
     Dosage: 2 ORANGE TABS IN AM; 1 BLUE TAB PM
     Route: 048
     Dates: start: 20200206

REACTIONS (2)
  - Tinnitus [None]
  - Infective pulmonary exacerbation of cystic fibrosis [None]
